FAERS Safety Report 8852515 (Version 2)
Quarter: 2012Q4

REPORT INFORMATION
  Report Type: Report from Study
  Country: HR (occurrence: HR)
  Receive Date: 20121022
  Receipt Date: 20121107
  Transmission Date: 20130627
  Serious: Yes (Hospitalization)
  Sender: FDA-Public Use
  Company Number: HR-ROCHE-CID000000002193476

PATIENT
  Age: 76 Year
  Sex: Male

DRUGS (2)
  1. RITUXIMAB [Suspect]
     Indication: CHRONIC LYMPHOCYTIC LEUKAEMIA
     Dosage: date of last dose prior to SAE was on 20/Aug/2012
     Route: 042
  2. CHLORAMBUCIL [Suspect]
     Indication: CHRONIC LYMPHOCYTIC LEUKAEMIA
     Dosage: date of last dose prior to SAE was on 04/Sep/2012
     Route: 042

REACTIONS (1)
  - Pancytopenia [Not Recovered/Not Resolved]
